FAERS Safety Report 14296747 (Version 2)
Quarter: 2017Q4

REPORT INFORMATION
  Report Type: Spontaneous
  Country: NL (occurrence: NL)
  Receive Date: 20171218
  Receipt Date: 20171223
  Transmission Date: 20180321
  Serious: Yes (Life-Threatening, Other)
  Sender: FDA-Public Use
  Company Number: PHHY2017NL186314

PATIENT
  Age: 64 Year
  Sex: Female
  Weight: 75 kg

DRUGS (5)
  1. GREPID [Concomitant]
     Active Substance: CLOPIDOGREL BESILATE
     Indication: PRODUCT USED FOR UNKNOWN INDICATION
     Dosage: 75 MGR. P.D.
     Route: 065
     Dates: start: 20171003, end: 20171030
  2. CARBAMAZEPIN [Concomitant]
     Active Substance: CARBAMAZEPINE
     Indication: PRODUCT USED FOR UNKNOWN INDICATION
     Dosage: 1200 MG, QD
     Route: 065
     Dates: start: 201708
  3. FOSINOPRIL [Suspect]
     Active Substance: FOSINOPRIL
     Dosage: 20 MG, QD
     Route: 065
     Dates: start: 20171002
  4. CARBAMAZEPIN [Concomitant]
     Active Substance: CARBAMAZEPINE
     Dosage: 300 MG, QD
     Route: 065
     Dates: start: 20171020
  5. FOSINOPRIL [Suspect]
     Active Substance: FOSINOPRIL
     Indication: PRODUCT USED FOR UNKNOWN INDICATION
     Dosage: 10 MG, QD IN EVENING
     Route: 065
     Dates: start: 20170920, end: 20171002

REACTIONS (5)
  - Cognitive disorder [Not Recovered/Not Resolved]
  - Paraesthesia [Not Recovered/Not Resolved]
  - Lacunar infarction [Recovered/Resolved with Sequelae]
  - Hypotension [Recovered/Resolved with Sequelae]
  - Hypertensive crisis [Recovered/Resolved with Sequelae]

NARRATIVE: CASE EVENT DATE: 20171003
